FAERS Safety Report 8511054-5 (Version None)
Quarter: 2012Q3

REPORT INFORMATION
  Report Type: 
  Country: None (occurrence: None)
  Receive Date: 20120716
  Receipt Date: 20120706
  Transmission Date: 20120928
  Serious: Yes (Hospitalization)
  Sender: FDA-Public Use
  Company Number: US-BAYER-2012-055391

PATIENT
  Age: 46 Year
  Sex: Female
  Weight: 68.027 kg

DRUGS (16)
  1. METOPROLOL TARTRATE [Concomitant]
     Dosage: 12.5 MG DAILY TO EVERY 12 HOURS
     Route: 048
     Dates: start: 20111219
  2. GELATIN [Concomitant]
     Dosage: 650 MG, QID
     Route: 048
     Dates: start: 20120110
  3. PROZAC [Concomitant]
     Dosage: UNK
     Route: 048
     Dates: start: 20120131
  4. ALPRAZOLAM [Concomitant]
     Indication: ANXIETY
     Dosage: 0.25 MG, UNK
     Route: 048
     Dates: start: 20101130
  5. NITROFURANTOIN [Concomitant]
     Dosage: 100 MG, UNK
     Dates: start: 20111111
  6. YAZ [Suspect]
  7. MACROBID [Concomitant]
     Dosage: UNK
     Dates: start: 20120131
  8. MELOXICAM [Concomitant]
     Dosage: 7.5 TO 15 MG
     Dates: start: 20110309, end: 20111213
  9. AMITRIPTYLINE HCL [Concomitant]
     Dosage: 25 MG, UNK
     Dates: start: 20111121
  10. DIFLUCAN [Concomitant]
     Dosage: UNK
     Route: 048
     Dates: start: 20111006
  11. FLUOXETINE HCL [Concomitant]
     Dosage: 20 MG, DAILY
     Route: 048
     Dates: start: 20111206
  12. LEXAPRO [Concomitant]
     Dosage: 10 MG, UNK
     Dates: start: 20101130, end: 20111109
  13. SPIRONOLACTONE W/ HYDROCHLOROTHIAZIDE [Concomitant]
     Dosage: 25/25
     Dates: start: 20120110
  14. HYDROCHLOROTHIAZIDE [Concomitant]
     Dosage: 12.5 MG, UNK
     Route: 048
     Dates: start: 20111013
  15. BUMETANIDE [Concomitant]
     Dosage: 0.5 MG, UNK
     Route: 048
     Dates: start: 20111110
  16. FUROSEMIDE [Concomitant]
     Dosage: 40 MG, DAILY
     Dates: start: 20120116

REACTIONS (8)
  - MOOD SWINGS [None]
  - PULMONARY EMBOLISM [None]
  - DYSPNOEA [None]
  - FATIGUE [None]
  - DEEP VEIN THROMBOSIS [None]
  - OEDEMA PERIPHERAL [None]
  - DEPRESSION [None]
  - PAIN IN EXTREMITY [None]
